FAERS Safety Report 4732189-9 (Version None)
Quarter: 2005Q3

REPORT INFORMATION
  Report Type: 
  Country: None (occurrence: None)
  Receive Date: 20050725
  Receipt Date: 20040623
  Transmission Date: 20060218
  Serious: Yes (Death, Other)
  Sender: FDA-Public Use
  Company Number: USA-2004-0015700

PATIENT
  Age: 37 Year
  Sex: Female
  Weight: 71.2 kg

DRUGS (4)
  1. MORPHINE SULFATE [Suspect]
  2. CODEINE SUL TAB [Suspect]
  3. DIPHENHYDRAMINE HCL [Suspect]
  4. NORTRIPTYLINE HCL [Suspect]

REACTIONS (3)
  - ACCIDENTAL OVERDOSE [None]
  - MULTIPLE DRUG OVERDOSE [None]
  - POLYSUBSTANCE ABUSE [None]
